FAERS Safety Report 14298476 (Version 7)
Quarter: 2019Q3

REPORT INFORMATION
  Report Type: Report from Study
  Country: US (occurrence: US)
  Receive Date: 20171218
  Receipt Date: 20190708
  Transmission Date: 20191004
  Serious: Yes (Hospitalization, Other)
  Sender: FDA-Public Use
  Company Number: US-ACTELION-A-US2017-149899

PATIENT
  Sex: Female
  Weight: 58.96 kg

DRUGS (25)
  1. LETAIRIS [Concomitant]
     Active Substance: AMBRISENTAN
     Dosage: 10 MG, QD
     Route: 048
  2. XANAX [Concomitant]
     Active Substance: ALPRAZOLAM
  3. GABAPENTIN. [Concomitant]
     Active Substance: GABAPENTIN
     Dosage: 600 MG, Q12HRS
     Route: 048
     Dates: start: 20171010
  4. TRAMADOL. [Concomitant]
     Active Substance: TRAMADOL
  5. TRIMETHOPRIM SULFA [Concomitant]
     Active Substance: TRIMETHOPRIM SULFATE
  6. VANCOMYCIN [Concomitant]
     Active Substance: VANCOMYCIN
     Dosage: UNK
  7. TETRAMYCIN [Concomitant]
  8. VELETRI [Suspect]
     Active Substance: EPOPROSTENOL
     Dosage: 34.5 NG/KG, PER MIN
     Route: 042
     Dates: start: 20181004
  9. WARFARIN [Concomitant]
     Active Substance: WARFARIN
  10. ONDANSETRON [Concomitant]
     Active Substance: ONDANSETRON
  11. ERYTHROMYCIN. [Concomitant]
     Active Substance: ERYTHROMYCIN
  12. PIPERACILLIN AND TAZOBACTAM [Concomitant]
     Active Substance: PIPERACILLIN SODIUM\TAZOBACTAM SODIUM
     Dosage: 3.375 G, TID
     Route: 042
     Dates: start: 20171012
  13. VELETRI [Suspect]
     Active Substance: EPOPROSTENOL
     Indication: PULMONARY ARTERIAL HYPERTENSION
     Dosage: 26.7 NG/KG, PER MIN
     Route: 042
  14. MULTIVITAMIN [Concomitant]
     Active Substance: VITAMINS
     Dosage: UNK, QD
     Route: 048
     Dates: start: 20171011
  15. PANTOPRAZOLE [Concomitant]
     Active Substance: PANTOPRAZOLE
     Dosage: 40 MG, BID
     Route: 048
     Dates: start: 20171011
  16. SPIRONOLACTONE. [Concomitant]
     Active Substance: SPIRONOLACTONE
     Dosage: 25 MG, QD
     Route: 048
     Dates: start: 20171011
  17. ZOLPIDEM [Concomitant]
     Active Substance: ZOLPIDEM TARTRATE
  18. ADCIRCA [Concomitant]
     Active Substance: TADALAFIL
  19. AMBRISENTAN [Concomitant]
     Active Substance: AMBRISENTAN
  20. LASIX [Concomitant]
     Active Substance: FUROSEMIDE
     Dosage: 40 MG, QD
     Route: 048
     Dates: start: 20171011
  21. TADALAFIL. [Concomitant]
     Active Substance: TADALAFIL
     Dosage: 40 MG, QD
  22. OXACILLIN [Concomitant]
     Active Substance: OXACILLIN SODIUM
  23. FLOLAN [Concomitant]
     Active Substance: EPOPROSTENOL SODIUM
     Dosage: UNK, QD
     Dates: start: 20171010
  24. CITALOPRAM [Concomitant]
     Active Substance: CITALOPRAM HYDROBROMIDE
     Dosage: 10 MG, QPM
     Route: 048
     Dates: start: 20171010
  25. CLINDAMYCIN. [Concomitant]
     Active Substance: CLINDAMYCIN

REACTIONS (33)
  - Arterial rupture [Recovering/Resolving]
  - Foreign body [Recovered/Resolved]
  - Catheter site infection [Recovered/Resolved]
  - Device related sepsis [Recovered/Resolved]
  - Medical device removal [Recovered/Resolved]
  - Angioedema [Unknown]
  - Influenza [Unknown]
  - Cough [Unknown]
  - Catheter site pain [Recovered/Resolved]
  - Rhinorrhoea [Unknown]
  - Pyrexia [Recovered/Resolved]
  - Chest wall abscess [Recovered/Resolved]
  - Goitre [Unknown]
  - Pain [Unknown]
  - Malaise [Unknown]
  - Catheter management [Recovered/Resolved]
  - Condition aggravated [Unknown]
  - Septic shock [Recovered/Resolved]
  - Haemoptysis [Recovering/Resolving]
  - Hyperhidrosis [Recovered/Resolved]
  - Chills [Recovered/Resolved]
  - Catheter site discharge [Recovered/Resolved]
  - Clostridium difficile infection [Unknown]
  - Sneezing [Unknown]
  - Transplant evaluation [Unknown]
  - Blood culture positive [Recovered/Resolved]
  - Catheter site pruritus [Recovered/Resolved]
  - Complication of device removal [Recovered/Resolved]
  - Catheter site erythema [Recovered/Resolved]
  - Vascular device infection [Unknown]
  - Device dislocation [Unknown]
  - Appendicitis perforated [Recovering/Resolving]
  - Thyroid function test abnormal [Unknown]
